FAERS Safety Report 7434054-5 (Version None)
Quarter: 2011Q2

REPORT INFORMATION
  Report Type: 
  Country: None (occurrence: None)
  Receive Date: 20110421
  Receipt Date: 20110421
  Transmission Date: 20111010
  Serious: Yes (Other)
  Sender: FDA-Public Use
  Company Number: None

PATIENT

DRUGS (1)
  1. LIPITOR [Suspect]
     Dosage: ONE TABLET PER DAY
     Dates: start: 20100201, end: 20100301

REACTIONS (5)
  - MUSCULAR WEAKNESS [None]
  - BLOOD CHOLESTEROL INCREASED [None]
  - PRODUCT SUBSTITUTION ISSUE [None]
  - DYSPNOEA [None]
  - ABDOMINAL DISCOMFORT [None]
